FAERS Safety Report 20749353 (Version 5)
Quarter: 2022Q4

REPORT INFORMATION
  Report Type: Spontaneous
  Country: FI (occurrence: FI)
  Receive Date: 20220426
  Receipt Date: 20221207
  Transmission Date: 20230113
  Serious: Yes (Death, Hospitalization, Other)
  Sender: FDA-Public Use
  Company Number: FI-INDIVIOR LIMITED-INDV-088256-2016

PATIENT
  Age: 19 Year
  Sex: Male

DRUGS (5)
  1. PREGABALIN [Suspect]
     Active Substance: PREGABALIN
     Indication: Product used for unknown indication
     Dosage: UNK
     Route: 065
  2. BUPRENORPHINE [Suspect]
     Active Substance: BUPRENORPHINE
     Indication: Product used for unknown indication
     Dosage: UNK
     Route: 042
  3. AMPHETAMINE [Suspect]
     Active Substance: AMPHETAMINE
     Indication: Product used for unknown indication
     Dosage: UNK
     Route: 065
  4. CANNABIS SATIVA SUBSP. INDICA TOP [Suspect]
     Active Substance: CANNABIS SATIVA SUBSP. INDICA TOP
     Indication: Product used for unknown indication
     Dosage: UNK
     Route: 065
  5. SUBUTEX [Suspect]
     Active Substance: BUPRENORPHINE HYDROCHLORIDE
     Indication: Product used for unknown indication
     Route: 042

REACTIONS (12)
  - Myelopathy [Fatal]
  - Rhabdomyolysis [Fatal]
  - Death [Fatal]
  - Quadriparesis [Unknown]
  - Toxicity to various agents [Unknown]
  - Compartment syndrome [Not Recovered/Not Resolved]
  - Loss of consciousness [Recovered/Resolved]
  - Substance abuse [Not Recovered/Not Resolved]
  - Drug interaction [Unknown]
  - Drug abuse [Unknown]
  - Somnolence [Unknown]
  - Intentional product use issue [Unknown]
